FAERS Safety Report 4645272-3 (Version None)
Quarter: 2005Q2

REPORT INFORMATION
  Report Type: 
  Country: None (occurrence: None)
  Receive Date: 20050331
  Receipt Date: 20050222
  Transmission Date: 20051028
  Serious: No
  Sender: FDA-Public Use
  Company Number: 05P-163-0291670

PATIENT
  Age: 54 Year
  Sex: Female
  Weight: 45.3597 kg

DRUGS (8)
  1. HUMIRA [Suspect]
     Indication: INFLAMMATION
     Dosage: 40 MG, 1 IN 2 WK, SUBCUTANEOUS,40 MG 1 IN 1 WK SUBCUTANEOUS
     Route: 058
     Dates: start: 20040101, end: 20040101
  2. HUMIRA [Suspect]
     Indication: INFLAMMATION
     Dosage: 40 MG, 1 IN 2 WK, SUBCUTANEOUS,40 MG 1 IN 1 WK SUBCUTANEOUS
     Route: 058
     Dates: start: 20040101
  3. METHOTREXATE SODIUM [Concomitant]
  4. FOLIC ACID [Concomitant]
  5. BUCINDOLOL HYDROCHLORIDE [Concomitant]
  6. TRAMADOL HCL [Concomitant]
  7. DIAZIDE [Concomitant]
  8. QUINAPRIL HCL [Concomitant]

REACTIONS (1)
  - INJECTION SITE IRRITATION [None]
